FAERS Safety Report 5613164-9 (Version None)
Quarter: 2008Q1

REPORT INFORMATION
  Report Type: 
  Country: None (occurrence: None)
  Receive Date: 20080129
  Receipt Date: 20080116
  Transmission Date: 20080703
  Serious: Yes (Hospitalization)
  Sender: FDA-Public Use
  Company Number: 230661J08USA

PATIENT
  Age: 56 Year
  Sex: Male
  Weight: 72.5755 kg

DRUGS (9)
  1. REBIF [Suspect]
     Indication: MULTIPLE SCLEROSIS
     Dosage: 44 MCG, 3 IN 1 WEEKS, SUBCUTANEOUS
     Route: 058
     Dates: start: 20031005
  2. NORVASC [Concomitant]
  3. TOPROL-XL [Concomitant]
  4. RENAL SOFT GEL (ALL OTHER THERAPEUTIC PRODUCTS) [Concomitant]
  5. RENAGEL [Concomitant]
  6. OYST-CAL (CALCIUM CARBONATE) [Concomitant]
  7. ENALAPRIL MALEATE [Concomitant]
  8. PRO-AIR (PROCATEROL HYDROCHLORIDE) [Concomitant]
  9. CYLCLOBENZAPRINE (CYCLOBENZAPRINE) [Concomitant]

REACTIONS (5)
  - ARTHRITIS [None]
  - DYSPNOEA [None]
  - HIP FRACTURE [None]
  - HYPERTENSION [None]
  - IMPAIRED HEALING [None]
